FAERS Safety Report 23817009 (Version 1)
Quarter: 2024Q2

REPORT INFORMATION
  Report Type: Other
  Country: DE (occurrence: DE)
  Receive Date: 20240504
  Receipt Date: 20240504
  Transmission Date: 20240715
  Serious: Yes (Other)
  Sender: FDA-Public Use
  Company Number: None

PATIENT

DRUGS (6)
  1. CLOPIDOGREL [Suspect]
     Active Substance: CLOPIDOGREL BISULFATE
     Indication: Antiplatelet therapy
     Dosage: 300 MG IF BODY MASS { 80 KG AND 450 MG IF BODY MASS } 80 KG
     Route: 065
  2. CLOPIDOGREL [Suspect]
     Active Substance: CLOPIDOGREL BISULFATE
     Route: 065
  3. ASPIRIN [Suspect]
     Active Substance: ASPIRIN
     Indication: Antiplatelet therapy
     Dosage: 300 MG IF NO PRIOR ASPIRIN USE OR 100 MG IF PRIOR ASPIRIN USE ON A REGULAR BASIS
     Route: 065
  4. ALTEPLASE [Suspect]
     Active Substance: ALTEPLASE
     Indication: Acute myocardial infarction
     Dosage: 100MG
     Route: 042
  5. ENOXAPARIN [Suspect]
     Active Substance: ENOXAPARIN
     Indication: Anticoagulant therapy
     Route: 042
  6. ENOXAPARIN [Suspect]
     Active Substance: ENOXAPARIN
     Dosage: 2 MG/KG BODY WEIGHT UNTIL A COMPLETED ANGIOGRAM OR PCI AND FOR AT LEAST 24 HOURS FOLLOWING THE PROCE
     Route: 058

REACTIONS (3)
  - Angina unstable [Unknown]
  - Reperfusion arrhythmia [Unknown]
  - Gastrointestinal haemorrhage [Unknown]
